FAERS Safety Report 7508082-5 (Version None)
Quarter: 2011Q2

REPORT INFORMATION
  Report Type: 
  Country: None (occurrence: None)
  Receive Date: 20110527
  Receipt Date: 20110513
  Transmission Date: 20111010
  Serious: Yes (Other)
  Sender: FDA-Public Use
  Company Number: US-BAYER-201037819NA

PATIENT
  Age: 28 Year
  Sex: Female
  Weight: 136 kg

DRUGS (5)
  1. DIAZEPAM [Concomitant]
     Dosage: 2 MG, HS
  2. IBUPROFEN [Concomitant]
     Dosage: 800 MG, TID
     Route: 048
  3. TRAMADOL HCL [Concomitant]
     Dosage: 50 MG, TID
     Route: 048
  4. CARISOPRODOL [Concomitant]
     Dosage: 350 MG, HS
     Route: 048
  5. YAZ [Suspect]
     Indication: CONTRACEPTION
     Dosage: 1 DF, QD
     Route: 048
     Dates: start: 20081201, end: 20091101

REACTIONS (2)
  - GALLBLADDER DISORDER [None]
  - ABDOMINAL PAIN [None]
